FAERS Safety Report 4289185-8 (Version None)
Quarter: 2004Q1

REPORT INFORMATION
  Report Type: 
  Country: None (occurrence: None)
  Receive Date: 20040206
  Receipt Date: 20040127
  Transmission Date: 20041129
  Serious: Yes (Hospitalization)
  Sender: FDA-Public Use
  Company Number: 2004-00374

PATIENT
  Age: 44 Year
  Sex: Male

DRUGS (1)
  1. DICLOFENAC (WATSON LABORATORIES)(DICLOFENAC POTASSIUM) TABLET, 50MG [Suspect]
     Indication: ARTHRALGIA
     Dosage: 75 MG, TID, ORAL
     Route: 048

REACTIONS (4)
  - ERYTHEMA MULTIFORME [None]
  - RENAL FAILURE [None]
  - RHABDOMYOLYSIS [None]
  - STEVENS-JOHNSON SYNDROME [None]
